FAERS Safety Report 17584045 (Version 1)
Quarter: 2020Q1

REPORT INFORMATION
  Report Type: Spontaneous
  Country: US (occurrence: US)
  Receive Date: 20200326
  Receipt Date: 20200326
  Transmission Date: 20200409
  Serious: No
  Sender: FDA-Public Use
  Company Number: US-TEVA-2020-US-1209961

PATIENT
  Sex: Male

DRUGS (1)
  1. FLUTICASONE PROPIONATE / SALMETEROL XINOFOATE [Suspect]
     Active Substance: FLUTICASONE PROPIONATE\SALMETEROL XINAFOATE
     Dosage: 55 MCG / 14 MCG
     Route: 065

REACTIONS (3)
  - Device malfunction [Unknown]
  - Dyspnoea [Unknown]
  - Drug ineffective [Unknown]
